FAERS Safety Report 7099481-7 (Version None)
Quarter: 2010Q4

REPORT INFORMATION
  Report Type: 
  Country: None (occurrence: None)
  Receive Date: 20101112
  Receipt Date: 20101103
  Transmission Date: 20110411
  Serious: Yes (Hospitalization, Disabling, Other)
  Sender: FDA-Public Use
  Company Number: US-MERCK-0609USA01224

PATIENT
  Age: 66 Year
  Sex: Female
  Weight: 63 kg

DRUGS (13)
  1. FOSAMAX [Suspect]
     Indication: OSTEOPOROSIS
     Route: 048
     Dates: start: 20001201
  2. FOSAMAX [Suspect]
     Route: 048
     Dates: end: 20050101
  3. ALTACE [Concomitant]
     Route: 065
     Dates: start: 20001201
  4. NORVASC [Concomitant]
     Route: 065
     Dates: start: 20020401
  5. CALTRATE [Concomitant]
     Route: 065
  6. LIPITOR [Concomitant]
     Route: 065
  7. LIPITOR [Concomitant]
     Route: 065
     Dates: start: 20050101
  8. PREMPRO [Concomitant]
     Route: 065
     Dates: start: 19991101, end: 20000101
  9. PHENAZOPYRIDINE HYDROCHLORIDE [Concomitant]
     Route: 065
     Dates: start: 20021001
  10. LEVAQUIN [Concomitant]
     Route: 065
     Dates: start: 20030101
  11. CENTRUM [Concomitant]
     Route: 065
  12. VITAMIN E [Concomitant]
     Route: 065
  13. CALCIUM (UNSPECIFIED) [Concomitant]
     Route: 065

REACTIONS (33)
  - ADHESION [None]
  - ARTHRALGIA [None]
  - ARTHROPATHY [None]
  - ATRIOVENTRICULAR BLOCK SECOND DEGREE [None]
  - BASAL CELL CARCINOMA [None]
  - CATARACT [None]
  - COLONIC POLYP [None]
  - COMPLEX REGIONAL PAIN SYNDROME [None]
  - CYSTOCELE [None]
  - DIVERTICULUM [None]
  - DYSURIA [None]
  - ENTEROCELE [None]
  - EPIDERMAL NECROSIS [None]
  - FALL [None]
  - FOREIGN BODY [None]
  - FRACTURE [None]
  - HAEMORRHOIDS [None]
  - HAND FRACTURE [None]
  - HEART RATE IRREGULAR [None]
  - IODINE ALLERGY [None]
  - MIXED INCONTINENCE [None]
  - NODULE [None]
  - OSTEONECROSIS OF JAW [None]
  - PHOTODERMATOSIS [None]
  - PNEUMONIA [None]
  - RADIUS FRACTURE [None]
  - SEBORRHOEIC KERATOSIS [None]
  - STRESS URINARY INCONTINENCE [None]
  - URINARY TRACT INFECTION [None]
  - UTERINE DISORDER [None]
  - UTERINE LEIOMYOMA [None]
  - VAGINAL PROLAPSE [None]
  - VENTRICULAR EXTRASYSTOLES [None]
